FAERS Safety Report 4285681-8 (Version None)
Quarter: 2004Q1

REPORT INFORMATION
  Report Type: 
  Country: None (occurrence: None)
  Receive Date: 20040202
  Receipt Date: 20040120
  Transmission Date: 20041129
  Serious: Yes (Death)
  Sender: FDA-Public Use
  Company Number: 04H-163-0247724-00

PATIENT
  Sex: Female

DRUGS (1)
  1. MORPHINE SUL INJ [Suspect]
     Indication: MURDER
     Dosage: INTRAVENOUS BOLUS
     Route: 040

REACTIONS (2)
  - DRUG TOXICITY [None]
  - MURDER [None]
